FAERS Safety Report 15958042 (Version 1)
Quarter: 2019Q1

REPORT INFORMATION
  Report Type: Report from Study
  Country: US (occurrence: US)
  Receive Date: 20190213
  Receipt Date: 20190213
  Transmission Date: 20190417
  Serious: Yes (Hospitalization, Other)
  Sender: FDA-Public Use
  Company Number: US-GILEAD-2019-0390332

PATIENT
  Age: 23 Year
  Sex: Female

DRUGS (6)
  1. COLISTIMETHATE [Concomitant]
     Active Substance: COLISTIMETHATE SODIUM
  2. MEROPENEM. [Concomitant]
     Active Substance: MEROPENEM
  3. TOBI [Concomitant]
     Active Substance: TOBRAMYCIN
  4. AZTREONAM LYSINE [Suspect]
     Active Substance: AZTREONAM LYSINE
     Indication: CYSTIC FIBROSIS
     Dosage: INHALE 75MG VIA NEB TID FOR 28 DAYS
     Route: 055
     Dates: start: 20161130
  5. COMPLETE FORM D500 [Concomitant]
  6. SYMDECKO [Concomitant]

REACTIONS (2)
  - Intestinal obstruction [Unknown]
  - Haemoptysis [Unknown]

NARRATIVE: CASE EVENT DATE: 20190121
